FAERS Safety Report 11829973 (Version 2)
Quarter: 2016Q1

REPORT INFORMATION
  Report Type: Spontaneous
  Country: JP (occurrence: JP)
  Receive Date: 20151213
  Receipt Date: 20160129
  Transmission Date: 20160525
  Serious: Yes (Other)
  Sender: FDA-Public Use
  Company Number: JP-TEVA-614167ISR

PATIENT
  Age: 58 Year
  Sex: Male

DRUGS (1)
  1. CISPLATIN. [Suspect]
     Active Substance: CISPLATIN
     Indication: OROPHARYNGEAL CANCER STAGE IV
     Dosage: 80 MG/M2
     Route: 065
     Dates: start: 201405

REACTIONS (6)
  - Renal tubular disorder [Unknown]
  - Femoral neck fracture [Unknown]
  - Renal salt-wasting syndrome [Recovered/Resolved]
  - Inappropriate antidiuretic hormone secretion [Unknown]
  - Mucosal inflammation [Unknown]
  - Renal failure [Unknown]
